FAERS Safety Report 9893871 (Version 1)
Quarter: 2014Q1

REPORT INFORMATION
  Report Type: Spontaneous
  Country: US (occurrence: US)
  Receive Date: 20140213
  Receipt Date: 20140213
  Transmission Date: 20141002
  Serious: Yes (Other)
  Sender: FDA-Public Use
  Company Number: US-ASTRAZENECA-2014SE08939

PATIENT
  Age: 58 Year
  Sex: Female
  Weight: 56.7 kg

DRUGS (10)
  1. PRILOSEC [Suspect]
     Indication: GASTRIC ULCER
     Route: 048
     Dates: start: 2011
  2. PRILOSEC [Suspect]
     Indication: GASTRIC ULCER
     Dosage: SOMETIME TOOK TWICE A DAY
     Route: 048
     Dates: start: 2011
  3. QUETIAPINE FUMARATE [Suspect]
     Indication: SCHIZOAFFECTIVE DISORDER BIPOLAR TYPE
     Route: 048
     Dates: start: 200603, end: 201309
  4. QUETIAPINE FUMARATE [Suspect]
     Indication: SCHIZOAFFECTIVE DISORDER BIPOLAR TYPE
     Route: 048
     Dates: start: 201309
  5. CRESTOR [Suspect]
     Indication: BLOOD CHOLESTEROL ABNORMAL
     Route: 048
     Dates: start: 201302
  6. KLONOPIN [Concomitant]
     Indication: PANIC ATTACK
     Route: 048
  7. CARVEDILOL [Concomitant]
     Indication: BLOOD PRESSURE ABNORMAL
     Route: 048
     Dates: start: 2008
  8. ZETIA [Concomitant]
     Indication: BLOOD CHOLESTEROL ABNORMAL
     Route: 048
     Dates: start: 2004
  9. FISH OIL [Concomitant]
     Indication: CARDIAC DISORDER
     Route: 048
     Dates: start: 1995
  10. ASPIRIN [Concomitant]
     Indication: CARDIAC DISORDER
     Route: 048

REACTIONS (11)
  - Cataract [Not Recovered/Not Resolved]
  - Glaucoma [Not Recovered/Not Resolved]
  - Sleep paralysis [Recovering/Resolving]
  - Panic attack [Not Recovered/Not Resolved]
  - Pain [Not Recovered/Not Resolved]
  - Gastric disorder [Not Recovered/Not Resolved]
  - Memory impairment [Not Recovered/Not Resolved]
  - Skin wrinkling [Not Recovered/Not Resolved]
  - Confusional state [Not Recovered/Not Resolved]
  - Hypertension [Not Recovered/Not Resolved]
  - Intentional drug misuse [Not Recovered/Not Resolved]
